FAERS Safety Report 4396783-X (Version None)
Quarter: 2004Q3

REPORT INFORMATION
  Report Type: 
  Country: None (occurrence: None)
  Receive Date: 20040714
  Receipt Date: 20040311
  Transmission Date: 20050211
  Serious: Yes (Hospitalization)
  Sender: FDA-Public Use
  Company Number: 200410885JP

PATIENT
  Age: 73 Year
  Sex: Male

DRUGS (1)
  1. ARAVA [Suspect]
     Indication: RHEUMATOID ARTHRITIS
     Route: 048
     Dates: start: 20031230, end: 20040210

REACTIONS (8)
  - ABDOMINAL PAIN [None]
  - ANAEMIA [None]
  - ARTHRITIS [None]
  - BIOPSY LIVER ABNORMAL [None]
  - CHEST PAIN [None]
  - DIARRHOEA [None]
  - HEPATITIS [None]
  - LIVER DISORDER [None]
